FAERS Safety Report 6270404-3 (Version None)
Quarter: 2009Q3

REPORT INFORMATION
  Report Type: 
  Country: None (occurrence: None)
  Receive Date: 20090716
  Receipt Date: 20090707
  Transmission Date: 20100115
  Serious: Yes (Hospitalization, Other)
  Sender: FDA-Public Use
  Company Number: FR-AMGEN-UK345897

PATIENT
  Sex: Female

DRUGS (10)
  1. VECTIBIX [Suspect]
     Indication: COLORECTAL CANCER
     Route: 042
     Dates: start: 20090428
  2. SEVREDOL [Concomitant]
     Route: 065
     Dates: start: 20090424, end: 20090520
  3. PARACETAMOL/ CAFFEINE [Concomitant]
     Route: 065
     Dates: start: 20090424, end: 20090501
  4. INNOHEP [Concomitant]
     Route: 065
     Dates: start: 20090423
  5. NEXIUM [Concomitant]
     Route: 065
     Dates: start: 20090423, end: 20090522
  6. OPIUM TINCTURE [Concomitant]
     Route: 065
     Dates: start: 20090424, end: 20090501
  7. NOROXIN [Concomitant]
     Route: 065
  8. UNSPECIFIED DIURETIC [Concomitant]
     Route: 065
  9. UNSPECIFIED NUTRITIONAL SUPPLEMENT [Concomitant]
     Route: 051
  10. UNSPECIFIED ANTICOAGULANT [Concomitant]
     Route: 065

REACTIONS (8)
  - CITROBACTER INFECTION [None]
  - CONFUSIONAL STATE [None]
  - GENERAL PHYSICAL CONDITION ABNORMAL [None]
  - HALLUCINATION [None]
  - HYPERAESTHESIA [None]
  - HYPOALBUMINAEMIA [None]
  - OEDEMA PERIPHERAL [None]
  - RENAL IMPAIRMENT [None]
